FAERS Safety Report 6486572-4 (Version None)
Quarter: 2009Q4

REPORT INFORMATION
  Report Type: 
  Country: None (occurrence: None)
  Receive Date: 20091210
  Receipt Date: 20091201
  Transmission Date: 20100525
  Serious: Yes (Other)
  Sender: FDA-Public Use
  Company Number: PHEH2006US06482

PATIENT
  Sex: Female
  Weight: 99.773 kg

DRUGS (32)
  1. ESTRADERM [Suspect]
     Indication: MENOPAUSE
     Route: 062
     Dates: start: 19890101, end: 19920101
  2. PREMARIN [Suspect]
     Indication: MENOPAUSE
     Dosage: 625 MG, UNK
     Route: 048
     Dates: start: 19930101, end: 19940101
  3. PROVERA [Suspect]
     Indication: MENOPAUSE
     Dosage: 5 MG, UNK
     Route: 048
     Dates: start: 19890101, end: 19940101
  4. AMITRIPTYLINE [Concomitant]
     Dosage: UNK, UNK
     Dates: start: 19880101
  5. PAXIL [Concomitant]
     Indication: DEPRESSION
     Dates: start: 19900101
  6. ZOCOR [Concomitant]
     Indication: HYPERCHOLESTEROLAEMIA
     Dosage: 40 MG, UNK
     Dates: start: 19800101
  7. LIPITOR [Concomitant]
     Indication: HYPERCHOLESTEROLAEMIA
  8. ELAVIL [Concomitant]
  9. CLARITIN [Concomitant]
  10. PRILOSEC [Concomitant]
  11. ASPIRIN [Concomitant]
  12. METOPROLOL [Concomitant]
     Dosage: 50MG, 1 1/2 TABLETS TWICE QD
  13. WARFARIN SODIUM [Concomitant]
     Dosage: 5MG (MON-THUR), 2 1/2MG (FRI)
  14. AMOXICILLIN [Concomitant]
     Dosage: UNK
  15. ANUCORT-HC [Concomitant]
     Indication: HAEMORRHOIDS
     Dosage: UNK
  16. FUROSEMIDE [Concomitant]
     Indication: ECZEMA
     Dosage: UNK
  17. HYDROCORTISONE [Concomitant]
     Indication: SKIN IRRITATION
     Dosage: UNK
  18. SKELAXIN [Concomitant]
     Indication: BACK PAIN
     Dosage: UNK
  19. FLUOCINONIDE [Concomitant]
     Indication: PRURITUS
     Dosage: UNK
  20. NITROSTAT [Concomitant]
     Dosage: UNK
  21. COUMADIN [Concomitant]
     Dosage: 5MG
  22. FISH OIL [Concomitant]
     Dosage: UNK
  23. HYDROCODONE [Concomitant]
     Dosage: 5-10ML, Q 4-6 PRN
  24. K-DUR [Concomitant]
     Dosage: UNK
  25. LISINOPRIL [Concomitant]
     Dosage: 10MG, ONE A DAY
  26. MAGNESIUM OXIDE [Concomitant]
     Dosage: 400MG, DAILY
     Route: 048
  27. METAMUCIL [Concomitant]
     Dosage: UNK
  28. MULTI-VITAMINS [Concomitant]
     Dosage: UNK
  29. NITROGLYCERIN [Concomitant]
     Dosage: 0.4MG, ONE PRN
  30. PAROXETINE [Concomitant]
     Dosage: 20MG, DAILY
  31. PROTONIX [Concomitant]
     Dosage: 40MG, DAILY
  32. VITAMIN D [Concomitant]
     Dosage: UNK
     Route: 048

REACTIONS (35)
  - ANGINA PECTORIS [None]
  - AORTIC ANEURYSM [None]
  - AORTIC ANEURYSM REPAIR [None]
  - AORTIC VALVE REPLACEMENT [None]
  - ARTERIOGRAM CORONARY [None]
  - ARTERIOSCLEROSIS [None]
  - BREAST CANCER [None]
  - BREAST CYST [None]
  - CARDIAC ENZYMES INCREASED [None]
  - CARDIAC SEPTAL DEFECT [None]
  - CARDIAC STRESS TEST [None]
  - CATHETERISATION CARDIAC ABNORMAL [None]
  - CHEST PAIN [None]
  - CHOLELITHIASIS [None]
  - COMPUTERISED TOMOGRAM ABNORMAL [None]
  - CORONARY ARTERY BYPASS [None]
  - COUGH [None]
  - DYSTONIA [None]
  - EJECTION FRACTION DECREASED [None]
  - FOOT OPERATION [None]
  - HEADACHE [None]
  - HYPERTENSION [None]
  - KNEE ARTHROPLASTY [None]
  - MAMMOGRAM [None]
  - MASTECTOMY [None]
  - MUSCLE TIGHTNESS [None]
  - OESOPHAGOSCOPY ABNORMAL [None]
  - OESTROGEN RECEPTOR ASSAY POSITIVE [None]
  - OSTEOARTHRITIS [None]
  - PAIN IN EXTREMITY [None]
  - PROGESTERONE RECEPTOR ASSAY POSITIVE [None]
  - RASH [None]
  - SCAN MYOCARDIAL PERFUSION [None]
  - SENSATION OF HEAVINESS [None]
  - SPINAL OSTEOARTHRITIS [None]
